FAERS Safety Report 11866656 (Version 1)
Quarter: 2015Q4

REPORT INFORMATION
  Report Type: Other
  Country: US (occurrence: US)
  Receive Date: 20151224
  Receipt Date: 20151224
  Transmission Date: 20160305
  Serious: Yes (Life-Threatening, Other)
  Sender: FDA-Public Use
  Company Number: US-SHIRE-US201516590

PATIENT
  Sex: Female

DRUGS (3)
  1. CINRYZE [Suspect]
     Active Substance: HUMAN C1-ESTERASE INHIBITOR
     Indication: PROPHYLAXIS
     Dosage: UNK
  2. FIRAZYR [Suspect]
     Active Substance: ICATIBANT ACETATE
     Indication: HEREDITARY ANGIOEDEMA
     Dosage: 30 MG, AS REQ^D
     Route: 058
  3. CINRYZE [Suspect]
     Active Substance: HUMAN C1-ESTERASE INHIBITOR
     Indication: HEREDITARY ANGIOEDEMA
     Dosage: UNK, OTHER (2 TIMES WEEKLY)
     Route: 042
     Dates: start: 201502

REACTIONS (9)
  - Concussion [Recovered/Resolved]
  - Poor venous access [Unknown]
  - Pyrexia [Recovered/Resolved]
  - Pharyngeal oedema [Recovered/Resolved]
  - Pneumonia [Recovered/Resolved]
  - Aphonia [Recovered/Resolved]
  - Sinusitis [Recovered/Resolved]
  - Hereditary angioedema [Recovered/Resolved]
  - Malaise [Recovered/Resolved]
